FAERS Safety Report 5162591-5 (Version None)
Quarter: 2006Q4

REPORT INFORMATION
  Report Type: 
  Country: None (occurrence: None)
  Receive Date: 20061114
  Receipt Date: 20061114
  Transmission Date: 20070319
  Serious: Yes (Other)
  Sender: FDA-Public Use
  Company Number: None

PATIENT
  Age: 50 Year
  Sex: Male
  Weight: 102.0593 kg

DRUGS (3)
  1. GUAIFENESIN [Suspect]
     Indication: COUGH
     Dosage: 2TSP, ORALLY 4X PER DAY
     Route: 048
     Dates: start: 20060906, end: 20060909
  2. GUAIFENESIN [Suspect]
     Indication: RESPIRATORY TRACT INFECTION
     Dosage: 2TSP, ORALLY 4X PER DAY
     Route: 048
     Dates: start: 20060906, end: 20060909
  3. ANTIBIOTIC [Concomitant]

REACTIONS (3)
  - DRUG INEFFECTIVE [None]
  - INSOMNIA [None]
  - PHARMACEUTICAL PRODUCT COMPLAINT [None]
